FAERS Safety Report 8901781 (Version 2)
Quarter: 2012Q4

REPORT INFORMATION
  Report Type: Spontaneous
  Country: US (occurrence: None)
  Receive Date: 20121105
  Receipt Date: 20121113
  Transmission Date: 20130627
  Serious: Yes (Death, Hospitalization)
  Sender: FDA-Public Use
  Company Number: 2012-0997

PATIENT
  Age: 43 Year
  Sex: Female

DRUGS (1)
  1. KYPROLIS [Suspect]
     Indication: DRUG USE FOR UNKNOWN INDICATION
     Route: 042
     Dates: start: 20120830, end: 20120914

REACTIONS (3)
  - Infection [None]
  - Disease progression [None]
  - Pneumonia [None]
